FAERS Safety Report 23795788 (Version 2)
Quarter: 2024Q2

REPORT INFORMATION
  Report Type: Report from Study
  Country: CA (occurrence: CA)
  Receive Date: 20240429
  Receipt Date: 20240430
  Transmission Date: 20240716
  Serious: Yes (Hospitalization)
  Sender: FDA-Public Use
  Company Number: CA-HLS-202302391

PATIENT
  Sex: Female

DRUGS (3)
  1. CLOZARIL [Suspect]
     Active Substance: CLOZAPINE
     Indication: Product used for unknown indication
     Route: 048
     Dates: start: 20100914
  2. CLOZARIL [Suspect]
     Active Substance: CLOZAPINE
     Indication: Product used for unknown indication
     Dosage: RESTARTED OCT 12 AND STOPPED AT AN UNKNOWN DATE BETWEEN MARCH 22ND 2024 TO APRIL 3RD 2024
     Route: 048
     Dates: start: 20231012, end: 2024
  3. CLOZARIL [Suspect]
     Active Substance: CLOZAPINE
     Indication: Product used for unknown indication
     Dosage: RESTARTED ON APRIL 3TH
     Route: 048
     Dates: start: 20240403

REACTIONS (3)
  - Therapy interrupted [Recovered/Resolved]
  - Therapy interrupted [Recovered/Resolved]
  - Neutrophil count increased [Unknown]
